FAERS Safety Report 16919184 (Version 1)
Quarter: 2019Q4

REPORT INFORMATION
  Report Type: Spontaneous
  Country: US (occurrence: US)
  Receive Date: 20191014
  Receipt Date: 20191014
  Transmission Date: 20200122
  Serious: Yes (Death)
  Sender: FDA-Public Use
  Company Number: None

PATIENT
  Age: 68 Year

DRUGS (1)
  1. ALTEPLASE. [Suspect]
     Active Substance: ALTEPLASE
     Indication: CEREBROVASCULAR ACCIDENT
     Dosage: ?          OTHER FREQUENCY:ONCE;?
     Route: 042
     Dates: start: 20190203, end: 20190203

REACTIONS (5)
  - Unresponsive to stimuli [None]
  - Headache [None]
  - Cardiac tamponade [None]
  - Aortic dissection [None]
  - Pericardial haemorrhage [None]

NARRATIVE: CASE EVENT DATE: 20190203
